FAERS Safety Report 8819716 (Version 1)
Quarter: 2012Q4

REPORT INFORMATION
  Report Type: 
  Country: TR (occurrence: TR)
  Receive Date: 20121001
  Receipt Date: 20121001
  Transmission Date: 20130627
  Serious: Yes (Other)
  Sender: FDA-Public Use
  Company Number: TR-MYLANLABS-2012S1019557

PATIENT
  Age: 4 Year
  Sex: Male

DRUGS (3)
  1. VALPROATE [Suspect]
     Indication: COMPLEX PARTIAL SEIZURES
     Dosage: 150 mg/d
     Route: 065
  2. CARBAMAZEPINE [Concomitant]
     Indication: GRAND MAL CONVULSION
     Dosage: 200mg/d; then increased to 400mg/d
     Route: 065
  3. CARBAMAZEPINE [Concomitant]
     Indication: COMPLEX PARTIAL SEIZURES
     Dosage: 400 mg/d
     Route: 065

REACTIONS (16)
  - Kluver-Bucy syndrome [Recovering/Resolving]
  - Frontotemporal dementia [Recovering/Resolving]
  - Psychomotor hyperactivity [Recovering/Resolving]
  - Aggression [Recovering/Resolving]
  - Irritability [Recovering/Resolving]
  - Sexually inappropriate behaviour [Recovering/Resolving]
  - Logorrhoea [Recovering/Resolving]
  - Increased appetite [Recovered/Resolved]
  - Hyperphagia [Recovered/Resolved]
  - Abnormal behaviour [Recovering/Resolving]
  - Perseveration [Recovering/Resolving]
  - Abnormal behaviour [Recovering/Resolving]
  - Disturbance in attention [Recovering/Resolving]
  - Impulsive behaviour [Recovering/Resolving]
  - Mood altered [Recovering/Resolving]
  - Disinhibition [Recovering/Resolving]
